FAERS Safety Report 21646068 (Version 1)
Quarter: 2022Q4

REPORT INFORMATION
  Report Type: Spontaneous
  Country: US (occurrence: US)
  Receive Date: 20221126
  Receipt Date: 20221126
  Transmission Date: 20230112
  Serious: Yes (Death, Hospitalization, Other)
  Sender: FDA-Public Use
  Company Number: US-AMGEN-USASP2022201791

PATIENT
  Age: 50 Year
  Sex: Female
  Weight: 146.6 kg

DRUGS (9)
  1. ERENUMAB [Suspect]
     Active Substance: ERENUMAB
     Indication: Migraine
     Dosage: UNK
     Route: 065
  2. AMITRIPTYLINE [Concomitant]
     Active Substance: AMITRIPTYLINE
  3. CLONAZEPAM [Concomitant]
     Active Substance: CLONAZEPAM
  4. METOPROLOL [Concomitant]
     Active Substance: METOPROLOL
  5. MONTELUKAST [Concomitant]
     Active Substance: MONTELUKAST SODIUM
  6. MYRBETRIQ [Concomitant]
     Active Substance: MIRABEGRON
  7. PANTOPRAZOLE [Concomitant]
     Active Substance: PANTOPRAZOLE
  8. ROPINIROLE [Concomitant]
     Active Substance: ROPINIROLE
  9. ESTRADIOL [Concomitant]
     Active Substance: ESTRADIOL

REACTIONS (13)
  - Shock haemorrhagic [Fatal]
  - Retroperitoneal haematoma [Fatal]
  - Hypotension [Unknown]
  - Nausea [Unknown]
  - Dizziness [Unknown]
  - Nitrite urine [Unknown]
  - Bacterial test positive [Unknown]
  - Acidosis [Unknown]
  - Pulmonary embolism [Unknown]
  - Deep vein thrombosis [Unknown]
  - Left ventricular hypertrophy [Unknown]
  - Abdominal wall haematoma [Unknown]
  - Pelvic haematoma [Unknown]
